FAERS Safety Report 5152225-8 (Version None)
Quarter: 2006Q4

REPORT INFORMATION
  Report Type: 
  Country: None (occurrence: None)
  Receive Date: 20061116
  Receipt Date: 20060823
  Transmission Date: 20070319
  Serious: Yes (Hospitalization, Other)
  Sender: FDA-Public Use
  Company Number: PHFR2006GB02659

PATIENT
  Age: 20 Year
  Sex: Female
  Weight: 58.4 kg

DRUGS (8)
  1. METHYLPREDNISOLONE [Concomitant]
     Indication: RENAL TRANSPLANT
     Dosage: 500 MG, TID
     Route: 042
     Dates: start: 20060801, end: 20060901
  2. PREDNISOLONE [Concomitant]
     Indication: RENAL TRANSPLANT
     Dosage: 40MG / DAY
     Route: 048
  3. AMLODIPINE [Concomitant]
     Indication: HYPERTENSION
     Dosage: 5MG / DAY
     Route: 048
     Dates: start: 20060801
  4. DEPO-PROVERA [Concomitant]
  5. PENICILLIN V [Concomitant]
     Indication: SPLENECTOMY
     Dosage: 500MG / DAY
     Route: 048
  6. IMPLANON [Suspect]
     Indication: CONTRACEPTION
     Dosage: UNK, UNK
     Dates: start: 20060801, end: 20060918
  7. RAPAMUNE [Concomitant]
     Dosage: }8MG / DAY
     Route: 048
     Dates: start: 20051206
  8. MYFORTIC [Suspect]
     Indication: RENAL TRANSPLANT
     Dosage: UNK, UNK
     Route: 048
     Dates: start: 20051206

REACTIONS (4)
  - BLOOD CREATININE INCREASED [None]
  - DRUG INTERACTION [None]
  - HYPERTENSION [None]
  - TRANSPLANT REJECTION [None]
